FAERS Safety Report 9659674 (Version 8)
Quarter: 2015Q2

REPORT INFORMATION
  Report Type: Spontaneous
  Country: JP (occurrence: JP)
  Receive Date: 20131031
  Receipt Date: 20150528
  Transmission Date: 20150821
  Serious: Yes (Other)
  Sender: FDA-Public Use
  Company Number: JP-JNJFOC-20131016692

PATIENT
  Age: 56 Year
  Sex: Male
  Weight: 52 kg

DRUGS (4)
  1. REMICADE [Suspect]
     Active Substance: INFLIXIMAB
     Indication: CROHN^S DISEASE
     Route: 042
     Dates: start: 20120509, end: 20120509
  2. MIYA-BM [Concomitant]
     Active Substance: CLOSTRIDIUM BUTYRICUM SPORES STRAIN M-55
     Indication: CROHN^S DISEASE
     Route: 048
  3. PENTASA [Concomitant]
     Active Substance: MESALAMINE
     Indication: CROHN^S DISEASE
     Route: 048
  4. REMICADE [Suspect]
     Active Substance: INFLIXIMAB
     Indication: CROHN^S DISEASE
     Route: 042
     Dates: start: 20120426, end: 20120426

REACTIONS (4)
  - Diarrhoea [Unknown]
  - Hyperthyroidism [Recovering/Resolving]
  - Goitre [Not Recovered/Not Resolved]
  - Thyroiditis subacute [Recovering/Resolving]

NARRATIVE: CASE EVENT DATE: 2012
